FAERS Safety Report 25314205 (Version 2)
Quarter: 2025Q2

REPORT INFORMATION
  Report Type: Spontaneous
  Country: JP (occurrence: JP)
  Receive Date: 20250514
  Receipt Date: 20250605
  Transmission Date: 20250716
  Serious: Yes (Hospitalization, Other)
  Sender: AMGEN
  Company Number: JP-AMGEN-JPNSP2025078358

PATIENT
  Age: 83 Year
  Sex: Female

DRUGS (8)
  1. TEPEZZA [Suspect]
     Active Substance: TEPROTUMUMAB-TRBW
     Indication: Endocrine ophthalmopathy
     Route: 040
     Dates: start: 20250221
  2. AMLODIPINE [Concomitant]
     Active Substance: AMLODIPINE BESYLATE
  3. GASLON [Concomitant]
     Active Substance: IRSOGLADINE MALEATE
  4. BISOPROLOL FUMARATE [Concomitant]
     Active Substance: BISOPROLOL FUMARATE
  5. LASIX [Concomitant]
     Active Substance: FUROSEMIDE
  6. NEUROTROPIN [Concomitant]
     Active Substance: NEUROTROPIN
  7. CALONAL [Concomitant]
     Active Substance: ACETAMINOPHEN
  8. BILASTINE [Concomitant]
     Active Substance: BILASTINE

REACTIONS (4)
  - Atrial fibrillation [Unknown]
  - Cerebral infarction [Unknown]
  - Hyponatraemia [Recovered/Resolved]
  - Thirst [Recovered/Resolved]

NARRATIVE: CASE EVENT DATE: 20250404
